FAERS Safety Report 11376856 (Version 1)
Quarter: 2015Q3

REPORT INFORMATION
  Report Type: Spontaneous
  Country: US (occurrence: US)
  Receive Date: 20150813
  Receipt Date: 20150813
  Transmission Date: 20151125
  Serious: No
  Sender: FDA-Public Use
  Company Number: US-009507513-1508USA001890

PATIENT
  Age: 14 Year
  Sex: Female

DRUGS (6)
  1. METHOTREXATE [Suspect]
     Active Substance: METHOTREXATE
     Dosage: UNK
     Dates: start: 2010, end: 2011
  2. PREDNISONE. [Suspect]
     Active Substance: PREDNISONE
     Indication: SCLERODERMA
     Dosage: UNK
     Route: 048
     Dates: start: 2010, end: 2010
  3. METHYLPREDNISOLONE SODIUM SUCCINATE. [Suspect]
     Active Substance: METHYLPREDNISOLONE SODIUM SUCCINATE
     Indication: SCLERODERMA
     Dosage: TORONTO PROTOCOL (1000 MG, QD, THREE CONSECUTIVE DAYS)
     Route: 042
     Dates: start: 2011, end: 2011
  4. METHYLPREDNISOLONE SODIUM SUCCINATE. [Suspect]
     Active Substance: METHYLPREDNISOLONE SODIUM SUCCINATE
     Dosage: TORONTO PROTOCOL (1000 MG, QD, THREE CONSECUTIVE DAYS)
     Route: 042
     Dates: start: 2012, end: 2012
  5. MINOCYCLINE [Concomitant]
     Active Substance: MINOCYCLINE\MINOCYCLINE HYDROCHLORIDE
  6. MYCOPHENOLATE MOFETIL. [Suspect]
     Active Substance: MYCOPHENOLATE MOFETIL
     Indication: SCLERODERMA
     Dosage: 1500 MG, TWICE DAILY
     Dates: start: 2011, end: 2013

REACTIONS (3)
  - Drug ineffective [Unknown]
  - Scleroderma [Recovering/Resolving]
  - Drug intolerance [Unknown]
